FAERS Safety Report 10239014 (Version 1)
Quarter: 2014Q1

REPORT INFORMATION
  Report Type: Spontaneous
  Country: US (occurrence: None)
  Receive Date: 20140306
  Receipt Date: 20140306
  Transmission Date: 20141002
  Serious: Yes (Life-Threatening, Other)
  Sender: FDA-Public Use
  Company Number: 163-21880-13040835

PATIENT
  Age: 70 Year
  Sex: Male
  Weight: 89.81 kg

DRUGS (9)
  1. REVLIMID [Suspect]
     Indication: NON-HODGKIN^S LYMPHOMA
     Route: 048
     Dates: start: 20120812
  2. CARVEDILOL (CARVEDILOL) (UNKNOWN) [Concomitant]
  3. COQ10 (UBIDECARENONE) (UNKNOWN) [Concomitant]
  4. NASONEX (MOMETASONE FUROATE) (SPRAY (NOT INHALATION)) [Concomitant]
  5. OMEPRAZOLE (OMEPRAZOLE) (UNKNOWN) [Concomitant]
  6. TAMSULOSIN HCL (TAMSULOSIN HYDROCHLORIDE) (UNKNOWN) [Concomitant]
  7. VITAMIN B12 (CYANOCOBALAMIN) (UNKNOWN) [Concomitant]
  8. VITAMIN D3 (COLECALCIFEROL) (UNKNOWN) [Concomitant]
  9. LORATADINE (LORATADINE) (UNKNOWN) [Concomitant]

REACTIONS (3)
  - Deep vein thrombosis [None]
  - Diarrhoea [None]
  - Coagulopathy [None]
